FAERS Safety Report 15997093 (Version 2)
Quarter: 2019Q1

REPORT INFORMATION
  Report Type: Spontaneous
  Country: US (occurrence: US)
  Receive Date: 20190222
  Receipt Date: 20190304
  Transmission Date: 20190418
  Serious: Yes (Other)
  Sender: FDA-Public Use
  Company Number: PHEH2019US007828

PATIENT
  Sex: Female

DRUGS (1)
  1. GLEEVEC [Suspect]
     Active Substance: IMATINIB MESYLATE
     Indication: CHRONIC MYELOID LEUKAEMIA
     Dosage: 01 DF, QD
     Route: 048
     Dates: start: 20130816

REACTIONS (26)
  - Renal artery stenosis [Unknown]
  - Acarodermatitis [Unknown]
  - Gastrooesophageal reflux disease [Unknown]
  - Cough [Unknown]
  - Tricuspid valve incompetence [Unknown]
  - Angina pectoris [Unknown]
  - Dyslipidaemia [Unknown]
  - Upper respiratory tract infection [Unknown]
  - Dizziness [Unknown]
  - Mitral valve incompetence [Unknown]
  - Diarrhoea [Unknown]
  - Intermittent claudication [Unknown]
  - Pulmonary hypertension [Unknown]
  - Arthralgia [Unknown]
  - Left atrial dilatation [Unknown]
  - Orthopnoea [Unknown]
  - Carotid artery stenosis [Unknown]
  - Fatigue [Unknown]
  - Coronary artery disease [Unknown]
  - Peripheral vascular disorder [Unknown]
  - Atelectasis [Unknown]
  - Back pain [Unknown]
  - Dyspnoea [Unknown]
  - Spinal osteoarthritis [Unknown]
  - Chronic obstructive pulmonary disease [Unknown]
  - Sleep apnoea syndrome [Unknown]
